FAERS Safety Report 4692286-3 (Version None)
Quarter: 2005Q2

REPORT INFORMATION
  Report Type: 
  Country: None (occurrence: None)
  Receive Date: 20050614
  Receipt Date: 20050601
  Transmission Date: 20051028
  Serious: No
  Sender: FDA-Public Use
  Company Number: 11416

PATIENT
  Age: 28 Year
  Sex: Female

DRUGS (2)
  1. MITOXANTRONE [Suspect]
     Indication: MULTIPLE SCLEROSIS
     Dosage: 120 MG TOTAL
  2. METHOTREXATE [Suspect]
     Indication: MULTIPLE SCLEROSIS
     Dosage: 500 MG

REACTIONS (1)
  - ACUTE MYELOID LEUKAEMIA [None]
